FAERS Safety Report 5486339-X (Version None)
Quarter: 2007Q4

REPORT INFORMATION
  Report Type: 
  Country: None (occurrence: None)
  Receive Date: 20071016
  Receipt Date: 20071012
  Transmission Date: 20080405
  Serious: Yes (Death, Other)
  Sender: FDA-Public Use
  Company Number: US-ASTRAZENECA-2007UW23769

PATIENT
  Age: 90 Year
  Sex: Male

DRUGS (2)
  1. NEXIUM [Suspect]
     Indication: GASTROOESOPHAGEAL REFLUX DISEASE
     Route: 048
  2. SIX DIFFERENT BLOOD PRESSURE MEDICATIONS [Concomitant]

REACTIONS (2)
  - DEATH [None]
  - ELECTROLYTE IMBALANCE [None]
